FAERS Safety Report 6903562-5 (Version None)
Quarter: 2010Q3

REPORT INFORMATION
  Report Type: 
  Country: None (occurrence: None)
  Receive Date: 20100708
  Receipt Date: 20090422
  Transmission Date: 20110219
  Serious: Yes (Death, Other)
  Sender: FDA-Public Use
  Company Number: 2009171020

PATIENT
  Age: 56 Year
  Sex: Male

DRUGS (2)
  1. CHANTIX [Suspect]
  2. CYMBALTA [Concomitant]

REACTIONS (2)
  - COMPLETED SUICIDE [None]
  - SUICIDAL IDEATION [None]
